FAERS Safety Report 9138070 (Version 2)
Quarter: 2013Q1

REPORT INFORMATION
  Report Type: Spontaneous
  Country: US (occurrence: US)
  Receive Date: 20130304
  Receipt Date: 20130311
  Transmission Date: 20140127
  Serious: No
  Sender: FDA-Public Use
  Company Number: US-009507513-1303USA000146

PATIENT
  Sex: Female
  Weight: 62.59 kg

DRUGS (1)
  1. IMPLANON [Suspect]
     Indication: CONTRACEPTION
     Dosage: FOR 3 YEARS
     Route: 059
     Dates: start: 20110607

REACTIONS (3)
  - Anger [Unknown]
  - Aggression [Unknown]
  - Urticaria [Unknown]
